FAERS Safety Report 9867938 (Version 3)
Quarter: 2014Q2

REPORT INFORMATION
  Report Type: Spontaneous
  Country: US (occurrence: US)
  Receive Date: 20140204
  Receipt Date: 20140630
  Transmission Date: 20141212
  Serious: Yes (Other)
  Sender: FDA-Public Use
  Company Number: US-PFIZER INC-2014029719

PATIENT
  Age: 66 Year
  Sex: Female

DRUGS (10)
  1. LIPITOR [Suspect]
     Indication: LOW DENSITY LIPOPROTEIN INCREASED
     Dosage: 40 MG, 1X/DAY
     Route: 048
     Dates: start: 200303
  2. LIPITOR [Suspect]
     Indication: CARDIOVASCULAR EVENT PROPHYLAXIS
  3. CENTRUM SILVER [Concomitant]
     Indication: ROUTINE HEALTH MAINTENANCE
     Dosage: 1 DF, 1X/DAY
     Dates: start: 1985
  4. VITAMIN C [Concomitant]
     Indication: ROUTINE HEALTH MAINTENANCE
     Dosage: 1000 MG, DAILY
     Dates: start: 1985
  5. VITAMIN E [Concomitant]
     Indication: ROUTINE HEALTH MAINTENANCE
     Dosage: 400 IU, DAILY
     Dates: start: 1985
  6. B COMPLEX [Concomitant]
     Indication: ROUTINE HEALTH MAINTENANCE
     Dosage: 1 DF, 2X/DAY
     Dates: start: 1985
  7. CALTRATE 600-D [Concomitant]
     Indication: PROPHYLAXIS
     Dosage: 1 DF, 2X/DAY
     Dates: start: 1985
  8. ASPIRIN [Concomitant]
     Indication: ROUTINE HEALTH MAINTENANCE
     Dosage: 81 MG, DAILY
     Dates: start: 2005
  9. VITAMIN D [Concomitant]
     Indication: CALCIUM DEFICIENCY
     Dosage: 1000 IU, DAILY
     Dates: start: 2012
  10. KRILL OIL [Concomitant]
     Indication: ROUTINE HEALTH MAINTENANCE
     Dosage: 300 MG, 2X/DAY
     Dates: start: 2012

REACTIONS (1)
  - Type 2 diabetes mellitus [Not Recovered/Not Resolved]
